FAERS Safety Report 9291343 (Version 1)
Quarter: 2013Q2

REPORT INFORMATION
  Report Type: Spontaneous
  Country: FR (occurrence: None)
  Receive Date: 20130513
  Receipt Date: 20130513
  Transmission Date: 20140414
  Serious: Yes (Other)
  Sender: FDA-Public Use
  Company Number: 2013P1005726

PATIENT
  Age: 21 Year
  Sex: Female

DRUGS (1)
  1. PLAQUENIL [Suspect]
     Indication: MIXED CONNECTIVE TISSUE DISEASE
     Dates: start: 20110808, end: 201109

REACTIONS (5)
  - Pregnancy [None]
  - Exposure during pregnancy [None]
  - Antinuclear antibody positive [None]
  - Antibody test positive [None]
  - Abortion induced [None]
